FAERS Safety Report 8608206-2 (Version None)
Quarter: 2012Q3

REPORT INFORMATION
  Report Type: 
  Country: None (occurrence: None)
  Receive Date: 20120821
  Receipt Date: 20120814
  Transmission Date: 20120928
  Serious: Yes (Other)
  Sender: FDA-Public Use
  Company Number: US-PFIZER INC-2012171303

PATIENT
  Age: 52 Year
  Sex: Female
  Weight: 87.5 kg

DRUGS (12)
  1. LYRICA [Suspect]
     Indication: NEURALGIA
     Dosage: 150 MG, 2X/DAY
     Route: 048
     Dates: start: 20110101, end: 20111229
  2. MORPHINE [Concomitant]
     Dosage: 15 MG, UNK
  3. PHENTERMINE [Concomitant]
     Dosage: 37 MG, UNK
  4. MELOXICAM [Concomitant]
     Dosage: 15 MG, UNK
  5. TEMAZEPAM [Concomitant]
     Dosage: 30 MG, UNK
  6. OMEPRAZOLE [Concomitant]
     Dosage: 20 MG, UNK
  7. CYMBALTA [Concomitant]
     Dosage: 60 MG, UNK
  8. SIMVASTATIN [Concomitant]
     Dosage: 20 MG, UNK
  9. LYRICA [Suspect]
     Dosage: 150 MG, 3X/DAY
     Route: 048
     Dates: start: 20111230
  10. METFORMIN [Concomitant]
     Dosage: 500 MG, UNK
  11. LYRICA [Suspect]
     Indication: NERVE INJURY
     Dosage: 75 MG, 2X/DAY
     Route: 048
     Dates: start: 20110822, end: 20110101
  12. SPIRONOLACTONE [Concomitant]
     Dosage: 150 MG, UNK

REACTIONS (4)
  - PAIN [None]
  - BACK PAIN [None]
  - IMPAIRED WORK ABILITY [None]
  - BACK DISORDER [None]
